FAERS Safety Report 16030762 (Version 1)
Quarter: 2019Q2

REPORT INFORMATION
  Report Type: Spontaneous
  Country: US (occurrence: US)
  Receive Date: 20190304
  Receipt Date: 20190304
  Transmission Date: 20190711
  Serious: Yes (Other)
  Sender: FDA-Public Use
  Company Number: None

PATIENT
  Sex: Female

DRUGS (2)
  1. ATIVAN [Suspect]
     Active Substance: LORAZEPAM
     Indication: ANXIETY
     Dates: start: 20171231, end: 20171231
  2. ATIVAN [Suspect]
     Active Substance: LORAZEPAM
     Indication: PAIN
     Dates: start: 20171231, end: 20171231

REACTIONS (2)
  - Sleep disorder [None]
  - Disorientation [None]

NARRATIVE: CASE EVENT DATE: 20171231
